FAERS Safety Report 7571707-2 (Version None)
Quarter: 2011Q2

REPORT INFORMATION
  Report Type: 
  Country: None (occurrence: None)
  Receive Date: 20110624
  Receipt Date: 20110608
  Transmission Date: 20111010
  Serious: No
  Sender: FDA-Public Use
  Company Number: US-B.I. PHARMACEUTICALS,INC./RIDGEFIELD-2011-BP-12862BP

PATIENT
  Age: 73 Year
  Sex: Male
  Weight: 71.21 kg

DRUGS (14)
  1. SYNTHROID [Concomitant]
     Indication: THYROID DISORDER
     Dosage: 0.175 MG
  2. ATENOLOL [Concomitant]
     Indication: BLOOD PRESSURE
     Dosage: 25 MG
  3. VITAMIN B-12 [Concomitant]
  4. ATENOLOL [Concomitant]
     Indication: ATRIAL FIBRILLATION
  5. ALLOPURINOL [Concomitant]
     Indication: BLOOD URIC ACID INCREASED
     Dosage: 150 MG
  6. ASCORBIC ACID [Concomitant]
     Dosage: 500 MG
  7. CO Q10 [Concomitant]
     Dosage: 100 MG
  8. FOLIC ACID [Concomitant]
     Dosage: 100 MG
  9. ENTOCORT EC [Concomitant]
     Indication: COLITIS
  10. B6 [Concomitant]
  11. MULTIPLE VITMAMINS [Concomitant]
  12. PRADAXA [Suspect]
     Indication: ATRIAL FIBRILLATION
     Dosage: 300 MG
     Dates: start: 20101123, end: 20101223
  13. HYDROCHLOROTHIAZIDE [Concomitant]
     Dosage: 25 MG
  14. HALCION [Concomitant]
     Indication: SLEEP DISORDER

REACTIONS (1)
  - OEDEMA PERIPHERAL [None]
